FAERS Safety Report 7027670-6 (Version None)
Quarter: 2010Q4

REPORT INFORMATION
  Report Type: 
  Country: None (occurrence: None)
  Receive Date: 20101004
  Receipt Date: 20100921
  Transmission Date: 20110411
  Serious: Yes (Other)
  Sender: FDA-Public Use
  Company Number: US-WATSON-2010-13016

PATIENT
  Age: 8 Year
  Sex: Female

DRUGS (2)
  1. PREDNISONE (WATSON LABORATORIES) [Suspect]
     Indication: DERMATOMYOSITIS
     Dosage: 40 MG, BID
     Route: 048
     Dates: start: 20060101
  2. METHYLPREDNISOLONE ACETATE [Suspect]
     Indication: DERMATOMYOSITIS
     Dosage: 30 MG/KG, DAILY
     Route: 042

REACTIONS (3)
  - ARTHROPATHY [None]
  - JOINT INJURY [None]
  - OSTEONECROSIS [None]
